FAERS Safety Report 6234254-6 (Version None)
Quarter: 2009Q2

REPORT INFORMATION
  Report Type: 
  Country: None (occurrence: None)
  Receive Date: 20090618
  Receipt Date: 20090610
  Transmission Date: 20091009
  Serious: Yes (Death, Other)
  Sender: FDA-Public Use
  Company Number: CA-BAYER-200913795NA

PATIENT
  Age: 83 Year
  Sex: Male
  Weight: 87 kg

DRUGS (12)
  1. XARELTO [Suspect]
     Indication: KNEE ARTHROPLASTY
     Dosage: TOTAL DAILY DOSE: 10 MG
     Route: 048
     Dates: start: 20090210, end: 20090210
  2. ASPIRIN [Suspect]
     Indication: DRUG USE FOR UNKNOWN INDICATION
     Route: 048
     Dates: start: 20090218
  3. ALTACE [Concomitant]
     Indication: HYPERTENSION
     Route: 048
     Dates: start: 20090218
  4. METOPROLOL TARTRATE [Concomitant]
     Indication: HYPERTENSION
  5. ATORVASTATIN CALCIUM [Concomitant]
     Indication: BLOOD CHOLESTEROL INCREASED
     Dates: start: 20090218
  6. TOLTERODINE TARTRATE [Concomitant]
     Indication: MUSCLE RELAXANT THERAPY
     Dates: start: 20090218
  7. ALFUZOSIN HYDROCHLORIDE [Concomitant]
     Dates: start: 20090218
  8. TYLENOL W/ CODEINE [Concomitant]
     Indication: PAIN
     Dates: start: 20090218
  9. QUININE [Concomitant]
     Indication: HOMEOPATHY
     Dates: start: 20090218
  10. DOCUSATE SODIUM [Concomitant]
     Indication: LAXATIVE SUPPORTIVE CARE
  11. ADVAIR DISKUS 100/50 [Concomitant]
     Indication: ASTHMA
     Dates: start: 20090218
  12. ALBUTEROL [Concomitant]
     Indication: ASTHMA
     Dates: start: 20090218

REACTIONS (4)
  - DUODENAL ULCER PERFORATION [None]
  - PROTHROMBIN TIME PROLONGED [None]
  - SEPTIC SHOCK [None]
  - UPPER GASTROINTESTINAL HAEMORRHAGE [None]
